FAERS Safety Report 9203167 (Version 1)
Quarter: 2013Q1

REPORT INFORMATION
  Report Type: Spontaneous
  Country: US (occurrence: None)
  Receive Date: 20120709
  Receipt Date: 20120709
  Transmission Date: 20140127
  Serious: Yes (Other)
  Sender: FDA-Public Use
  Company Number: PHHY2010US79657

PATIENT
  Age: 82 Year
  Sex: Female

DRUGS (1)
  1. GLEEVEC (IMATINIB) [Suspect]
     Indication: SOFT TISSUE CANCER
     Route: 048
     Dates: start: 201008

REACTIONS (15)
  - Neuropathy peripheral [None]
  - Oedema peripheral [None]
  - Periorbital oedema [None]
  - Dysphonia [None]
  - Dry eye [None]
  - Eye irritation [None]
  - Gastrointestinal sounds abnormal [None]
  - Rash [None]
  - Diarrhoea [None]
  - Nausea [None]
  - Abdominal distension [None]
  - Flatulence [None]
  - Eructation [None]
  - Abdominal pain upper [None]
  - Paraesthesia [None]
